FAERS Safety Report 8345954-6 (Version None)
Quarter: 2012Q2

REPORT INFORMATION
  Report Type: 
  Country: None (occurrence: None)
  Receive Date: 20120507
  Receipt Date: 20120425
  Transmission Date: 20120825
  Serious: No
  Sender: FDA-Public Use
  Company Number: 2012SP016679

PATIENT
  Age: 40 Year
  Sex: Female

DRUGS (3)
  1. SYCREST (ASENAPINE /05706901/) (5 MG) [Suspect]
     Indication: SCHIZOPHRENIA, PARANOID TYPE
     Dosage: 5 MG;QD;SL
     Route: 060
     Dates: start: 20120315, end: 20120315
  2. LORMETAZEPAM [Concomitant]
  3. QUETIAPINE FUMARATE [Concomitant]

REACTIONS (3)
  - HYPERSENSITIVITY [None]
  - MACROGLOSSIA [None]
  - OFF LABEL USE [None]
